FAERS Safety Report 11196644 (Version 1)
Quarter: 2015Q2

REPORT INFORMATION
  Report Type: Spontaneous
  Country: US (occurrence: US)
  Receive Date: 20150617
  Receipt Date: 20150617
  Transmission Date: 20150821
  Serious: No
  Sender: FDA-Public Use
  Company Number: US-009507513-1505USA007921

PATIENT
  Sex: Female

DRUGS (1)
  1. NEXPLANON [Suspect]
     Active Substance: ETONOGESTREL
     Indication: CONTRACEPTION
     Dosage: UNK
     Route: 059

REACTIONS (5)
  - Implant site irritation [Unknown]
  - Implant site hypersensitivity [Unknown]
  - Implant site erythema [Unknown]
  - Implant site abscess [Not Recovered/Not Resolved]
  - Implant site pain [Unknown]
